FAERS Safety Report 23725918 (Version 2)
Quarter: 2024Q2

REPORT INFORMATION
  Report Type: Report from Study
  Country: US (occurrence: US)
  Receive Date: 20240410
  Receipt Date: 20240509
  Transmission Date: 20240716
  Serious: No
  Sender: FDA-Public Use
  Company Number: US-SAGE-2024SAGE000042

PATIENT
  Age: 27 Year
  Sex: Female
  Weight: 84.82 kg

DRUGS (8)
  1. ZULRESSO [Suspect]
     Active Substance: BREXANOLONE
     Indication: Perinatal depression
     Dosage: 30 MCG/KG/HR (VTBI - 10.2 ML) FIRST BAG
     Route: 042
     Dates: start: 20231103, end: 20231103
  2. ZULRESSO [Suspect]
     Active Substance: BREXANOLONE
     Dosage: 60 MCG/KG/HR (VTBI - 40.7 ML) FIRST BAG
     Route: 042
     Dates: start: 20231103, end: 20231103
  3. ZULRESSO [Suspect]
     Active Substance: BREXANOLONE
     Dosage: 60 MCG/KG/HR (VTBI - 61.1 ML) SECOND BAG
     Route: 042
     Dates: start: 20231103, end: 20231104
  4. ZULRESSO [Suspect]
     Active Substance: BREXANOLONE
     Dosage: 90 MCG/KG/HR (VTBI - 91.6 ML) THIRD BAG
     Route: 042
     Dates: start: 20231104, end: 20231104
  5. ZULRESSO [Suspect]
     Active Substance: BREXANOLONE
     Dosage: 90 MCG/KG/HR (VTBI - 91.6 ML) FOURTH BAG
     Route: 042
     Dates: start: 20231104, end: 20231105
  6. ZULRESSO [Suspect]
     Active Substance: BREXANOLONE
     Dosage: 90 MCG/KG/HR (VTBI - 30.5 ML) FIFTH BAG
     Route: 042
     Dates: start: 20231105, end: 20231105
  7. ZULRESSO [Suspect]
     Active Substance: BREXANOLONE
     Dosage: 60 MCG/KG/HR (VTBI - 20.4 ML) FIFTH BAG
     Route: 042
     Dates: start: 20231105, end: 20231105
  8. ZULRESSO [Suspect]
     Active Substance: BREXANOLONE
     Dosage: 30 MCG/KG/HR (VTBI - 10.2 ML) FIFTH BAG
     Route: 042
     Dates: start: 20231105, end: 20231105

REACTIONS (1)
  - Drug monitoring procedure incorrectly performed [Unknown]

NARRATIVE: CASE EVENT DATE: 20231103
